FAERS Safety Report 8169509-1 (Version None)
Quarter: 2012Q1

REPORT INFORMATION
  Report Type: 
  Country: None (occurrence: None)
  Receive Date: 20120104
  Receipt Date: 20111201
  Transmission Date: 20120608
  Serious: No
  Sender: FDA-Public Use
  Company Number: 2011HGS-002892

PATIENT
  Age: 56 Year
  Sex: Female
  Weight: 79.8331 kg

DRUGS (20)
  1. TOPAMAX (TOPIRAMATE) (TOPIRAMATE) [Concomitant]
  2. FLUOXETINE [Concomitant]
  3. PREDNISONE [Concomitant]
  4. KCL (POTASSIUM CHLORIDE) (POTASSIUM CHLORIDE) [Concomitant]
  5. MINOXIDIL (MINOXIDIL) (MINOXIDIL) [Concomitant]
  6. NASOCORT (BUDESONIDE) (BUDESONIDE) [Concomitant]
  7. CLONIDINE [Concomitant]
  8. BENLYSTA [Suspect]
     Indication: SYSTEMIC LUPUS ERYTHEMATOSUS
     Dosage: 1 IN 28 D, INTRAVENOUS DRIP
     Dates: start: 20110930
  9. VITAMIN B12 (CYANOCOBALAMIN) (CYANOCOBALAMIN) [Concomitant]
  10. OMEPRAZOLE [Concomitant]
  11. BENICAR [Concomitant]
  12. MAXIDE (DYAZIDE) (HYDROCHLOROTHIAZIDE, TRIAMTERENE) [Concomitant]
  13. LABETALOL (LABETALOL) (LABETALOL) [Concomitant]
  14. HYDROCODONE( HYDORCODONE) (HYDROCODONE) [Concomitant]
  15. RHINOCORT (BUDESONIDE) (BUDESONIDE) [Concomitant]
  16. FLUOCINONIDE CREAM (FLUOCINONIDE) (FLUOCINONIDE) [Concomitant]
  17. AMITIRPTYLINE (AMITRIPTYLINE) (AMITRIPTYLINE) [Concomitant]
  18. SPIRONOLACTONE [Concomitant]
  19. CELLCEPT (MYCOPHENOLATE MOFETIL) (MYCOPHENOLATE MOFETIL) [Concomitant]
  20. FOLIC ACID [Concomitant]

REACTIONS (1)
  - PRODUCTIVE COUGH [None]
